FAERS Safety Report 6392194-6 (Version None)
Quarter: 2009Q4

REPORT INFORMATION
  Report Type: 
  Country: None (occurrence: None)
  Receive Date: 20091007
  Receipt Date: 20090511
  Transmission Date: 20100525
  Serious: Yes (Other)
  Sender: FDA-Public Use
  Company Number: BR-PFIZER INC-2009211973

PATIENT

DRUGS (2)
  1. VIAGRA [Suspect]
     Indication: ERECTILE DYSFUNCTION
     Dosage: UNK MG, AS NEEDED
     Route: 048
     Dates: start: 19980101
  2. SIMVASTATIN [Concomitant]
     Dosage: UNK
     Route: 048

REACTIONS (3)
  - ERYTHEMA [None]
  - INTENTIONAL DRUG MISUSE [None]
  - NEPHROLITHIASIS [None]
